FAERS Safety Report 9182611 (Version 1)
Quarter: 2013Q1

REPORT INFORMATION
  Report Type: Spontaneous
  Country: US (occurrence: US)
  Receive Date: 20130322
  Receipt Date: 20130322
  Transmission Date: 20140127
  Serious: No
  Sender: FDA-Public Use
  Company Number: US-BRISTOL-MYERS SQUIBB COMPANY-16844417

PATIENT
  Age: 81 Year
  Sex: Female

DRUGS (3)
  1. ERBITUX [Suspect]
     Indication: COLON CANCER METASTATIC
     Dosage: 1DF=400MG WHICH IS 250MG/M2
     Route: 042
     Dates: start: 20120711, end: 20120829
  2. XELODA [Concomitant]
  3. ENBREL [Concomitant]

REACTIONS (4)
  - Memory impairment [Unknown]
  - Dry skin [Unknown]
  - Nausea [Unknown]
  - Incontinence [Unknown]
